FAERS Safety Report 9115644 (Version 1)
Quarter: 2013Q1

REPORT INFORMATION
  Report Type: Spontaneous
  Country: US (occurrence: US)
  Receive Date: 20130225
  Receipt Date: 20130225
  Transmission Date: 20140127
  Serious: No
  Sender: FDA-Public Use
  Company Number: US-BRISTOL-MYERS SQUIBB COMPANY-16775256

PATIENT
  Age: 78 Year
  Sex: Female
  Weight: 77.1 kg

DRUGS (1)
  1. TRIAMCINOLONE ACE INJ [Suspect]
     Indication: ARTHRALGIA

REACTIONS (3)
  - Hypertension [Unknown]
  - Asthenia [Unknown]
  - Dry eye [Unknown]
